FAERS Safety Report 9344246 (Version 1)
Quarter: 2013Q2

REPORT INFORMATION
  Report Type: Spontaneous
  Country: FR (occurrence: FR)
  Receive Date: 20130612
  Receipt Date: 20130612
  Transmission Date: 20140414
  Serious: Yes (Hospitalization, Other)
  Sender: FDA-Public Use
  Company Number: FR-ELI_LILLY_AND_COMPANY-FR201306001639

PATIENT
  Age: 51 Year
  Sex: Female
  Weight: 52 kg

DRUGS (7)
  1. EFIENT [Suspect]
     Indication: MYOCARDIAL INFARCTION
     Dosage: 10 MG, QD
     Route: 048
     Dates: start: 20130317, end: 20130414
  2. KARDEGIC [Concomitant]
     Indication: MYOCARDIAL INFARCTION
     Dosage: 75 MG, QD
     Route: 048
     Dates: start: 20130317, end: 20130414
  3. CRESTOR [Concomitant]
     Dosage: 20 MG, QD
  4. CARDENSIEL [Concomitant]
     Dosage: 2.5 MG, BID
  5. TRIATEC [Concomitant]
     Dosage: 2.5 MG, BID
  6. NATISPRAY [Concomitant]
     Indication: CHEST PAIN
     Dosage: 0.3 DF, PRN
  7. PRAVASTATIN [Interacting]
     Dosage: 40 MG, UNK

REACTIONS (12)
  - Malaise [Recovered/Resolved]
  - Shock haemorrhagic [Recovered/Resolved]
  - Melaena [Recovered/Resolved]
  - Haemorrhagic anaemia [Recovered/Resolved]
  - Eye haemorrhage [Unknown]
  - Ulcer [Unknown]
  - Face oedema [Unknown]
  - Pruritus [Unknown]
  - Migraine [Unknown]
  - Muscle spasms [Unknown]
  - Off label use [Recovered/Resolved]
  - Chest pain [Recovered/Resolved]
